FAERS Safety Report 13715229 (Version 2)
Quarter: 2017Q3

REPORT INFORMATION
  Report Type: Spontaneous
  Country: GB (occurrence: GB)
  Receive Date: 20170704
  Receipt Date: 20170822
  Transmission Date: 20171127
  Serious: Yes (Other)
  Sender: FDA-Public Use
  Company Number: GB-BAUSCH-BL-2017-020640

PATIENT
  Age: 35 Year
  Sex: Female

DRUGS (2)
  1. METRONIDAZOLE. [Suspect]
     Active Substance: METRONIDAZOLE
     Indication: INFECTIVE AORTITIS
     Route: 042
  2. MEROPENEM. [Concomitant]
     Active Substance: MEROPENEM
     Indication: INFECTIVE AORTITIS

REACTIONS (1)
  - Neurotoxicity [Recovered/Resolved]
